FAERS Safety Report 23452873 (Version 1)
Quarter: 2024Q1

REPORT INFORMATION
  Report Type: Spontaneous
  Country: GB (occurrence: GB)
  Receive Date: 20240129
  Receipt Date: 20240129
  Transmission Date: 20240409
  Serious: Yes (Other)
  Sender: FDA-Public Use
  Company Number: GB-SANDOZ-SDZ2024GB008258

PATIENT
  Sex: Female

DRUGS (2)
  1. OMEPRAZOLE [Suspect]
     Active Substance: OMEPRAZOLE
     Indication: Non-cardiac chest pain
     Dosage: 20 MG
     Route: 065
     Dates: start: 20231207, end: 20240115
  2. SUMATRIPTAN [Concomitant]
     Active Substance: SUMATRIPTAN
     Indication: Headache
     Dosage: UNK
     Route: 065

REACTIONS (5)
  - Swelling face [Not Recovered/Not Resolved]
  - Vision blurred [Unknown]
  - Abdominal distension [Unknown]
  - Abnormal weight gain [Unknown]
  - Pollakiuria [Unknown]

NARRATIVE: CASE EVENT DATE: 20231207
